FAERS Safety Report 13819320 (Version 1)
Quarter: 2017Q3

REPORT INFORMATION
  Report Type: Spontaneous
  Country: US (occurrence: US)
  Receive Date: 20170731
  Receipt Date: 20170731
  Transmission Date: 20171127
  Serious: Yes (Other)
  Sender: FDA-Public Use
  Company Number: None

PATIENT
  Age: 71 Year
  Sex: Female
  Weight: 52.2 kg

DRUGS (9)
  1. VITAMIN D3 [Concomitant]
     Active Substance: CHOLECALCIFEROL
  2. BUPROPION HYDROCHLORIDE SR [Suspect]
     Active Substance: BUPROPION HYDROCHLORIDE
     Indication: DEPRESSION
     Dosage: ?          QUANTITY:90 TABLET(S);?
     Route: 048
     Dates: start: 20170510, end: 20170727
  3. OMEGA 3 [Concomitant]
     Active Substance: OMEGA-3 FATTY ACIDS
  4. GENERIC SINGULAIR [Concomitant]
     Active Substance: MONTELUKAST SODIUM
  5. MULTI VITAMIN [Concomitant]
     Active Substance: VITAMINS
  6. CALCIUM [Concomitant]
     Active Substance: CALCIUM
  7. POTASSIUM [Concomitant]
     Active Substance: POTASSIUM
  8. BIOTIN [Concomitant]
     Active Substance: BIOTIN
  9. ZINC PICOLINATE [Concomitant]
     Active Substance: ZINC PICOLINATE

REACTIONS (9)
  - Dysgeusia [None]
  - Tinnitus [None]
  - Dry mouth [None]
  - Dysphagia [None]
  - Insomnia [None]
  - Cardiac flutter [None]
  - Constipation [None]
  - Urticaria [None]
  - Pharyngeal oedema [None]

NARRATIVE: CASE EVENT DATE: 20170724
